FAERS Safety Report 17436951 (Version 1)
Quarter: 2020Q1

REPORT INFORMATION
  Report Type: Spontaneous
  Country: US (occurrence: US)
  Receive Date: 20200219
  Receipt Date: 20200219
  Transmission Date: 20200409
  Serious: Yes (Other)
  Sender: FDA-Public Use
  Company Number: US-UCBSA-2020006117

PATIENT
  Sex: Female

DRUGS (1)
  1. NEUPRO [Suspect]
     Active Substance: ROTIGOTINE
     Indication: PRODUCT USED FOR UNKNOWN INDICATION
     Dosage: UNK
     Route: 062

REACTIONS (8)
  - Swelling [Unknown]
  - Dizziness [Unknown]
  - Rash [Unknown]
  - Injection site rash [Unknown]
  - Contusion [Unknown]
  - Gait disturbance [Unknown]
  - General physical health deterioration [Unknown]
  - Blister [Unknown]
